FAERS Safety Report 21117402 (Version 7)
Quarter: 2025Q3

REPORT INFORMATION
  Report Type: Report from Study
  Country: US (occurrence: US)
  Receive Date: 20220722
  Receipt Date: 20250915
  Transmission Date: 20251020
  Serious: Yes (Other)
  Sender: BRISTOL-MYERS SQUIBB COMPANY
  Company Number: US-BRISTOL-MYERS SQUIBB COMPANY-2022-078240

PATIENT
  Age: 49 Year
  Sex: Female
  Weight: 85.0 kg

DRUGS (29)
  1. REVLIMID [Suspect]
     Active Substance: LENALIDOMIDE
     Indication: Plasma cell myeloma
  2. REVLIMID [Suspect]
     Active Substance: LENALIDOMIDE
  3. REVLIMID [Suspect]
     Active Substance: LENALIDOMIDE
  4. REVLIMID [Suspect]
     Active Substance: LENALIDOMIDE
     Dates: start: 2017
  5. REVLIMID [Suspect]
     Active Substance: LENALIDOMIDE
     Dates: start: 2017
  6. REVLIMID [Suspect]
     Active Substance: LENALIDOMIDE
     Dates: start: 2017
  7. REVLIMID [Suspect]
     Active Substance: LENALIDOMIDE
     Dates: start: 2017
  8. REVLIMID [Suspect]
     Active Substance: LENALIDOMIDE
  9. REVLIMID [Suspect]
     Active Substance: LENALIDOMIDE
  10. REVLIMID [Suspect]
     Active Substance: LENALIDOMIDE
     Dates: start: 2017
  11. REVLIMID [Suspect]
     Active Substance: LENALIDOMIDE
     Dates: start: 2017
  12. REVLIMID [Suspect]
     Active Substance: LENALIDOMIDE
     Dates: start: 2017
  13. REVLIMID [Suspect]
     Active Substance: LENALIDOMIDE
  14. REVLIMID [Suspect]
     Active Substance: LENALIDOMIDE
  15. REVLIMID [Suspect]
     Active Substance: LENALIDOMIDE
     Dosage: 21 OUT OF 28 DAYS
  16. COLESEVELAM [Suspect]
     Active Substance: COLESEVELAM
     Indication: Product used for unknown indication
  17. LINZESS [Concomitant]
     Active Substance: LINACLOTIDE
     Indication: Product used for unknown indication
  18. CHOLESTYRAMINE [Concomitant]
     Active Substance: CHOLESTYRAMINE
     Indication: Product used for unknown indication
  19. ASPIRIN [Concomitant]
     Active Substance: ASPIRIN
     Indication: Product used for unknown indication
  20. ASPIRIN [Concomitant]
     Active Substance: ASPIRIN
  21. COLESEVELAM HYDROCHLORIDE [Concomitant]
     Active Substance: COLESEVELAM HYDROCHLORIDE
     Indication: Product used for unknown indication
  22. LINZESS [Concomitant]
     Active Substance: LINACLOTIDE
     Indication: Product used for unknown indication
  23. LINZESS [Concomitant]
     Active Substance: LINACLOTIDE
  24. XGEVA [Concomitant]
     Active Substance: DENOSUMAB
     Indication: Product used for unknown indication
  25. XGEVA [Concomitant]
     Active Substance: DENOSUMAB
  26. SERTRALINE HYDROCHLORIDE [Concomitant]
     Active Substance: SERTRALINE HYDROCHLORIDE
     Indication: Product used for unknown indication
  27. SPIKEVAX [Concomitant]
     Active Substance: CX-046684
     Indication: Product used for unknown indication
  28. FLUARIX NOS [Concomitant]
     Active Substance: INFLUENZA VIRUS VACCINE
     Indication: Product used for unknown indication
  29. LORAZEPAM [Concomitant]
     Active Substance: LORAZEPAM
     Indication: Product used for unknown indication

REACTIONS (15)
  - Gastrointestinal disorder [Not Recovered/Not Resolved]
  - Brain fog [Not Recovered/Not Resolved]
  - Nausea [Unknown]
  - Muscle spasms [Recovered/Resolved]
  - Diarrhoea [Not Recovered/Not Resolved]
  - Fatigue [Unknown]
  - Constipation [Unknown]
  - Illness [Unknown]
  - Malaise [Unknown]
  - Bone pain [Unknown]
  - Off label use [Unknown]
  - Anal incontinence [Unknown]
  - Weight fluctuation [Unknown]
  - Bone marrow failure [Unknown]
  - Pain [Unknown]
